FAERS Safety Report 17412142 (Version 5)
Quarter: 2020Q3

REPORT INFORMATION
  Report Type: Spontaneous
  Country: JP (occurrence: JP)
  Receive Date: 20200213
  Receipt Date: 20200805
  Transmission Date: 20201102
  Serious: Yes (Hospitalization, Other)
  Sender: FDA-Public Use
  Company Number: JP-AMGEN-JPNSP2020022173

PATIENT
  Age: 61 Year
  Sex: Male
  Weight: 75.5 kg

DRUGS (21)
  1. EPOETIN ALFA [Concomitant]
     Active Substance: ERYTHROPOIETIN
     Dosage: 1500 DF, QW
     Route: 065
     Dates: start: 20190511, end: 20190816
  2. OXAROL MARUHO [Concomitant]
     Dosage: 5 UG
     Route: 065
     Dates: end: 20190209
  3. OXAROL MARUHO [Concomitant]
     Dosage: 5 UG, Q56H
     Route: 065
     Dates: start: 20191112, end: 20200306
  4. FULSTAN [Concomitant]
     Dosage: 0.3 UG, EVERYDAY
     Route: 065
  5. EPOETIN ALFA [Concomitant]
     Active Substance: ERYTHROPOIETIN
     Dosage: 1500 DF, QW
     Route: 065
     Dates: start: 20191026, end: 20191203
  6. OXAROL MARUHO [Concomitant]
     Dosage: 10 UG, Q84H
     Route: 065
     Dates: start: 20190709, end: 20191111
  7. PARSABIV [Suspect]
     Active Substance: ETELCALCETIDE HYDROCHLORIDE
     Indication: HYPERPARATHYROIDISM SECONDARY
     Dosage: 2.5 MG, Q56H
     Route: 010
     Dates: start: 20190604, end: 20200303
  8. EPOETIN ALFA [Concomitant]
     Active Substance: ERYTHROPOIETIN
     Dosage: 2250 DF, QW
     Route: 065
     Dates: start: 20190820, end: 20191023
  9. EPOETIN ALFA [Concomitant]
     Active Substance: ERYTHROPOIETIN
     Dosage: 2250 DF, QW
     Route: 065
     Dates: start: 20200411
  10. PARSABIV [Suspect]
     Active Substance: ETELCALCETIDE HYDROCHLORIDE
     Dosage: 2.5 MG, Q84H
     Route: 010
     Dates: start: 20200310, end: 20200515
  11. OXAROL MARUHO [Concomitant]
     Dosage: 5 UG, Q56H
     Route: 065
     Dates: start: 20190212, end: 20190411
  12. OXAROL MARUHO [Concomitant]
     Dosage: 5 UG, Q84H
     Route: 065
     Dates: start: 20200310, end: 20200515
  13. OXAROL MARUHO [Concomitant]
     Dosage: 10 UG, Q56H
     Route: 065
     Dates: start: 20190516, end: 20190708
  14. OXAROL MARUHO [Concomitant]
     Dosage: 5 UG, Q84H
     Route: 065
     Dates: start: 20200516
  15. OXAROL MARUHO [Concomitant]
     Dosage: 2.5 UG, QW
     Route: 065
     Dates: start: 20200516
  16. FOSRENOL [Concomitant]
     Active Substance: LANTHANUM CARBONATE
     Dosage: 1500 MG, EVERYDAY
     Route: 048
     Dates: end: 20200723
  17. P?TOL [SUCROFERRIC OXYHYDROXIDE] [Concomitant]
     Active Substance: SUCROFERRIC OXYHYDROXIDE
     Dosage: 3000 MG, EVERYDAY
     Route: 048
     Dates: end: 20200723
  18. EPOETIN ALFA [Concomitant]
     Active Substance: ERYTHROPOIETIN
     Dosage: 750 DF, QW
     Route: 065
     Dates: start: 20191214, end: 20200409
  19. PARSABIV [Suspect]
     Active Substance: ETELCALCETIDE HYDROCHLORIDE
     Dosage: 2.5 MG, Q56H
     Route: 010
     Dates: start: 20200516
  20. EPOETIN ALFA [Concomitant]
     Active Substance: ERYTHROPOIETIN
     Dosage: 9000 DF, QW
     Route: 065
     Dates: end: 20190508
  21. OXAROL MARUHO [Concomitant]
     Dosage: 10 UG, Q84H
     Route: 065
     Dates: start: 20190413, end: 20190514

REACTIONS (2)
  - Heat illness [Recovered/Resolved]
  - Shunt occlusion [Recovered/Resolved]

NARRATIVE: CASE EVENT DATE: 20190801
